FAERS Safety Report 11375078 (Version 2)
Quarter: 2015Q3

REPORT INFORMATION
  Report Type: Spontaneous
  Country: US (occurrence: US)
  Receive Date: 20150813
  Receipt Date: 20150915
  Transmission Date: 20151125
  Serious: Yes (Hospitalization)
  Sender: FDA-Public Use
  Company Number: US-UNITED THERAPEUTICS-UNT-2015-009787

PATIENT
  Age: 56 Year
  Sex: Female
  Weight: 99.77 kg

DRUGS (1)
  1. REMODULIN [Suspect]
     Active Substance: TREPROSTINIL
     Indication: PULMONARY ARTERIAL HYPERTENSION
     Dosage: 0.099 ?G/KG, CONTINUING
     Route: 041
     Dates: start: 20100209

REACTIONS (8)
  - Asthenia [Unknown]
  - Influenza like illness [Unknown]
  - Drug titration error [Unknown]
  - Vomiting [Unknown]
  - Mental status changes [Unknown]
  - Hallucination [Unknown]
  - Drug dose omission [Unknown]
  - Tic [Unknown]

NARRATIVE: CASE EVENT DATE: 201508
